FAERS Safety Report 23634422 (Version 3)
Quarter: 2025Q1

REPORT INFORMATION
  Report Type: Spontaneous
  Country: US (occurrence: US)
  Receive Date: 20240314
  Receipt Date: 20250207
  Transmission Date: 20250409
  Serious: No
  Sender: SANOFI AVENTIS
  Company Number: US-SA-SAC20240311000947

PATIENT
  Age: 53 Year
  Sex: Male
  Weight: 95.45 kg

DRUGS (11)
  1. DUPIXENT [Suspect]
     Active Substance: DUPILUMAB
     Indication: Eczema
     Route: 058
     Dates: start: 202402, end: 202402
  2. DUPIXENT [Suspect]
     Active Substance: DUPILUMAB
     Indication: Dermatitis atopic
     Dosage: 300 MG, QOW
     Route: 058
     Dates: start: 2024
  3. AZITHROMYCIN [Concomitant]
     Active Substance: AZITHROMYCIN
  4. IBUPROFEN [Concomitant]
     Active Substance: IBUPROFEN
  5. CLOBETASOL PROPIONATE [Concomitant]
     Active Substance: CLOBETASOL PROPIONATE
  6. SKYRIZI [Concomitant]
     Active Substance: RISANKIZUMAB-RZAA
  7. TACROLIMUS [Concomitant]
     Active Substance: TACROLIMUS
  8. AMOXICILLIN [Concomitant]
     Active Substance: AMOXICILLIN
  9. METHYLPREDNISOLONE [Concomitant]
     Active Substance: METHYLPREDNISOLONE
  10. LOSARTAN POTASSIUM [Concomitant]
     Active Substance: LOSARTAN POTASSIUM
  11. CHLORTHALIDONE [Concomitant]
     Active Substance: CHLORTHALIDONE

REACTIONS (4)
  - Eczema [Unknown]
  - Pruritus [Not Recovered/Not Resolved]
  - Accidental exposure to product [Unknown]
  - Exposure via skin contact [Unknown]

NARRATIVE: CASE EVENT DATE: 20240101
